FAERS Safety Report 6570293-3 (Version None)
Quarter: 2010Q1

REPORT INFORMATION
  Report Type: 
  Country: None (occurrence: None)
  Receive Date: 20100204
  Receipt Date: 20100127
  Transmission Date: 20100710
  Serious: Yes (Other)
  Sender: FDA-Public Use
  Company Number: US-SANOFI-AVENTIS-2010SA003794

PATIENT
  Sex: Male

DRUGS (2)
  1. ELOXATIN [Suspect]
     Indication: RECTAL CANCER
     Route: 042
     Dates: start: 20090609, end: 20090609
  2. ELOXATIN [Suspect]
     Route: 042
     Dates: start: 20090918, end: 20090918

REACTIONS (6)
  - FALL [None]
  - HEADACHE [None]
  - NEUROPATHY PERIPHERAL [None]
  - RETINAL DISORDER [None]
  - URINARY INCONTINENCE [None]
  - VITAMIN B12 DECREASED [None]
